FAERS Safety Report 19140658 (Version 1)
Quarter: 2021Q2

REPORT INFORMATION
  Report Type: Spontaneous
  Country: US (occurrence: US)
  Receive Date: 20210415
  Receipt Date: 20210415
  Transmission Date: 20210717
  Serious: Yes (Disabling)
  Sender: FDA-Public Use
  Company Number: None

PATIENT
  Age: 68 Year
  Sex: Male
  Weight: 90 kg

DRUGS (3)
  1. LUPIN BRAND OF NARDIL 60 MG [Concomitant]
  2. VITAMINS B AND D [Concomitant]
  3. PHENELZINE SULFATE. [Suspect]
     Active Substance: PHENELZINE SULFATE
     Indication: DEPRESSION
     Dosage: ?          QUANTITY:4 TABLET(S);?
     Route: 048

REACTIONS (4)
  - Drug ineffective [None]
  - Drug monitoring procedure not performed [None]
  - Product formulation issue [None]
  - Depression [None]

NARRATIVE: CASE EVENT DATE: 20170418
